FAERS Safety Report 9274838 (Version 1)
Quarter: 2013Q2

REPORT INFORMATION
  Report Type: Spontaneous
  Country: BR (occurrence: None)
  Receive Date: 20130429
  Receipt Date: 20130429
  Transmission Date: 20140414
  Serious: Yes (Other)
  Sender: FDA-Public Use
  Company Number: 7205990

PATIENT
  Age: 40 Year
  Sex: Female

DRUGS (1)
  1. EUTHYROX [Suspect]
     Indication: HYPOTHYROIDISM
     Dosage: (FIRST THREE DAYS)
     Dates: start: 20130411

REACTIONS (4)
  - Vaginal haemorrhage [None]
  - Blood pressure increased [None]
  - Nervousness [None]
  - Maternal exposure during pregnancy [None]
